FAERS Safety Report 9524805 (Version 2)
Quarter: 2015Q1

REPORT INFORMATION
  Report Type: Spontaneous
  Country: US (occurrence: US)
  Receive Date: 20130916
  Receipt Date: 20150206
  Transmission Date: 20150721
  Serious: Yes (Other)
  Sender: FDA-Public Use
  Company Number: US-BAYER-2013-110930

PATIENT
  Age: 28 Year
  Sex: Female
  Weight: 85.71 kg

DRUGS (4)
  1. MIRENA [Suspect]
     Active Substance: LEVONORGESTREL
     Indication: CONTRACEPTION
     Dosage: 20 MCG/24HR, CONT
     Route: 015
     Dates: start: 2007, end: 20111118
  2. PROZAC [Concomitant]
     Active Substance: FLUOXETINE HYDROCHLORIDE
  3. ALLEGRA [Concomitant]
     Active Substance: FEXOFENADINE HYDROCHLORIDE
  4. MIRENA [Suspect]
     Active Substance: LEVONORGESTREL
     Indication: CONTRACEPTION
     Dosage: 20 MCG/24HR, CONT
     Route: 015
     Dates: start: 20111118, end: 20130130

REACTIONS (8)
  - Injury [None]
  - Device issue [None]
  - Medical device discomfort [None]
  - Device dislocation [None]
  - Scar [None]
  - Medical device complication [None]
  - Medical device pain [None]
  - Procedural pain [None]

NARRATIVE: CASE EVENT DATE: 201301
